FAERS Safety Report 6791134-5 (Version None)
Quarter: 2010Q2

REPORT INFORMATION
  Report Type: 
  Country: None (occurrence: None)
  Receive Date: 20100624
  Receipt Date: 20100621
  Transmission Date: 20101027
  Serious: Yes (Hospitalization, Other)
  Sender: FDA-Public Use
  Company Number: US-ELI_LILLY_AND_COMPANY-US200906005658

PATIENT
  Sex: Female
  Weight: 92.971 kg

DRUGS (14)
  1. BYETTA [Suspect]
     Dosage: UNK, UNK
     Dates: start: 20070914, end: 20080114
  2. BYETTA [Suspect]
     Dosage: 10 UG, UNK
     Dates: start: 20080422, end: 20081010
  3. DIOVAN [Concomitant]
     Indication: HYPERTENSION
  4. SYNTHROID [Concomitant]
     Indication: HYPOTHYROIDISM
  5. METFORMIN HCL [Concomitant]
  6. ZETIA [Concomitant]
  7. LIPITOR [Concomitant]
     Dosage: 20 MG, UNK
  8. COENZYME Q10 [Concomitant]
     Dosage: 100 MG, UNK
  9. ASPIRIN [Concomitant]
     Dosage: 81 MG, UNK
  10. OMACOR [Concomitant]
     Dosage: 1 G, UNK
  11. MULTI-VITAMIN [Concomitant]
  12. LISINOPRIL HYDROCHLORTHIAZID [Concomitant]
  13. PRAVASTATIN [Concomitant]
  14. GOODYS POWDERS [Concomitant]

REACTIONS (4)
  - DUODENITIS [None]
  - GASTRIC ULCER [None]
  - PANCREATITIS [None]
  - RENAL INJURY [None]
